FAERS Safety Report 12641135 (Version 1)
Quarter: 2016Q3

REPORT INFORMATION
  Report Type: Spontaneous
  Country: GB (occurrence: GB)
  Receive Date: 20160810
  Receipt Date: 20160810
  Transmission Date: 20161109
  Serious: Yes (Death)
  Sender: FDA-Public Use
  Company Number: GB-IPSEN BIOPHARMACEUTICALS, INC.-2016-06633

PATIENT
  Age: 46 Year
  Sex: Male

DRUGS (12)
  1. ASPIRIN. [Concomitant]
     Active Substance: ASPIRIN
  2. BOTULINUM TOXIN TYPE A NOS [Suspect]
     Active Substance: BOTULINUM TOXIN TYPE A
     Indication: PRODUCT USE ISSUE
  3. METFORMIN [Concomitant]
     Active Substance: METFORMIN HYDROCHLORIDE
  4. MIRTAZAPINE. [Concomitant]
     Active Substance: MIRTAZAPINE
  5. LACTULOSE. [Concomitant]
     Active Substance: LACTULOSE
  6. QUETIAPINE. [Concomitant]
     Active Substance: QUETIAPINE
  7. SIMVASTATIN. [Concomitant]
     Active Substance: SIMVASTATIN
  8. DESMOPRESSIN [Concomitant]
     Active Substance: DESMOPRESSIN
  9. BOTULINUM TOXIN TYPE A NOS [Suspect]
     Active Substance: BOTULINUM TOXIN TYPE A
     Indication: URINARY INCONTINENCE
     Dosage: NOT REPORTED
     Route: 030
     Dates: start: 20150608, end: 20150608
  10. ANAESTHETIC [Concomitant]
     Active Substance: UNSPECIFIED INGREDIENT
     Indication: CYSTOSCOPY
  11. CLOPIDOGREL [Concomitant]
     Active Substance: CLOPIDOGREL BISULFATE
  12. OMEPRAZOLE. [Concomitant]
     Active Substance: OMEPRAZOLE

REACTIONS (6)
  - Intestinal ischaemia [Fatal]
  - Abdominal distension [Fatal]
  - Azotaemia [Fatal]
  - Sepsis [Fatal]
  - Escherichia infection [Fatal]
  - Portal venous gas [Fatal]

NARRATIVE: CASE EVENT DATE: 201506
